FAERS Safety Report 21092657 (Version 2)
Quarter: 2022Q3

REPORT INFORMATION
  Report Type: Spontaneous
  Country: US (occurrence: US)
  Receive Date: 20220718
  Receipt Date: 20220723
  Transmission Date: 20221027
  Serious: Yes (Life-Threatening, Hospitalization, Other)
  Sender: FDA-Public Use
  Company Number: US-drreddys-LIT/USA/22/0152307

PATIENT
  Age: 72 Year
  Sex: Male

DRUGS (5)
  1. MINOCYCLINE HYDROCHLORIDE [Suspect]
     Active Substance: MINOCYCLINE HYDROCHLORIDE
     Indication: Nocardiosis
  2. CEFTRIAXONE [Suspect]
     Active Substance: CEFTRIAXONE
     Indication: Nocardiosis
  3. IMIPENEM [Suspect]
     Active Substance: IMIPENEM
     Indication: Nocardiosis
  4. COTRIMOXAZOLE [Suspect]
     Active Substance: SULFAMETHOXAZOLE\TRIMETHOPRIM
     Indication: Nocardiosis
  5. LINEZOLID [Suspect]
     Active Substance: LINEZOLID
     Indication: Nocardiosis

REACTIONS (2)
  - Drug ineffective [Unknown]
  - Condition aggravated [Unknown]
